FAERS Safety Report 10540824 (Version 1)
Quarter: 2014Q4

REPORT INFORMATION
  Report Type: Spontaneous
  Country: US (occurrence: None)
  Receive Date: 20141023
  Receipt Date: 20141023
  Transmission Date: 20150529
  Serious: No
  Sender: FDA-Public Use
  Company Number: None

PATIENT
  Age: 60 Year
  Sex: Female
  Weight: 72.58 kg

DRUGS (1)
  1. DEXILANT [Suspect]
     Active Substance: DEXLANSOPRAZOLE
     Indication: GASTROOESOPHAGEAL REFLUX DISEASE
     Dosage: 1 PILL
     Route: 048
     Dates: start: 20130601, end: 20140601

REACTIONS (5)
  - Hypoaesthesia [None]
  - Vitamin D deficiency [None]
  - Arthralgia [None]
  - Pain in extremity [None]
  - Myalgia [None]
